FAERS Safety Report 19306594 (Version 1)
Quarter: 2021Q2

REPORT INFORMATION
  Report Type: Spontaneous
  Country: US (occurrence: US)
  Receive Date: 20210525
  Receipt Date: 20210525
  Transmission Date: 20210717
  Serious: Yes (Hospitalization, Disabling)
  Sender: FDA-Public Use
  Company Number: None

PATIENT
  Age: 34 Year
  Sex: Male
  Weight: 108.8 kg

DRUGS (2)
  1. THC VAPE [Suspect]
     Active Substance: .DELTA.8-TETRAHYDROCANNABINOL\DEVICE\HERBALS
  2. BLEOMYCIN [Suspect]
     Active Substance: BLEOMYCIN SULFATE
     Indication: TESTIS CANCER
     Dosage: ?          OTHER FREQUENCY:ONCE;?
     Route: 042
     Dates: start: 20210223, end: 20210420

REACTIONS (6)
  - Dyspnoea [None]
  - Interstitial lung disease [None]
  - Traumatic lung injury [None]
  - Toxicity to various agents [None]
  - Pneumomediastinum [None]
  - Pneumothorax [None]

NARRATIVE: CASE EVENT DATE: 20210511
